FAERS Safety Report 6361136-1 (Version None)
Quarter: 2009Q3

REPORT INFORMATION
  Report Type: 
  Country: None (occurrence: None)
  Receive Date: 20090918
  Receipt Date: 20090917
  Transmission Date: 20100115
  Serious: Yes (Other)
  Sender: FDA-Public Use
  Company Number: BR-PFIZER INC-2009193189

PATIENT
  Age: 35 Year

DRUGS (2)
  1. DEPO-PROVERA [Suspect]
     Indication: MENORRHAGIA
     Dosage: 150 MG, UNK
  2. DEPO-PROVERA [Suspect]
     Indication: UTERINE LEIOMYOMA

REACTIONS (1)
  - BLOOD PRESSURE ABNORMAL [None]
